FAERS Safety Report 19771140 (Version 1)
Quarter: 2021Q3

REPORT INFORMATION
  Report Type: Spontaneous
  Country: CA (occurrence: CA)
  Receive Date: 20210901
  Receipt Date: 20210901
  Transmission Date: 20211014
  Serious: Yes (Other)
  Sender: FDA-Public Use
  Company Number: CA-ACCORD-236680

PATIENT
  Age: 78 Year
  Sex: Male

DRUGS (6)
  1. DESOXIMETASONE. [Concomitant]
     Active Substance: DESOXIMETASONE
     Dosage: 1 EVERY 1 DAYS
     Route: 048
  2. SULFASALAZINE. [Concomitant]
     Active Substance: SULFASALAZINE
     Indication: RHEUMATOID ARTHRITIS
  3. TOFACITINIB [Concomitant]
     Active Substance: TOFACITINIB
     Dosage: 1 EVERY 1 DAYS
  4. CYANOCOBALAMIN. [Concomitant]
     Active Substance: CYANOCOBALAMIN
  5. ELIQUIS [Concomitant]
     Active Substance: APIXABAN
     Dosage: 2 EVERY 1 DAYS, TABLET
  6. METHOTREXATE. [Suspect]
     Active Substance: METHOTREXATE
     Indication: RHEUMATOID ARTHRITIS
     Route: 058

REACTIONS (8)
  - Drug ineffective [Unknown]
  - Atrioventricular block [Unknown]
  - Drug intolerance [Unknown]
  - Macrocytosis [Unknown]
  - Product use issue [Unknown]
  - Toxicity to various agents [Unknown]
  - Lymphadenopathy [Unknown]
  - Thrombocytopenia [Unknown]
